FAERS Safety Report 5675290-8 (Version None)
Quarter: 2008Q2

REPORT INFORMATION
  Report Type: 
  Country: None (occurrence: None)
  Receive Date: 20080307
  Receipt Date: 20071120
  Transmission Date: 20081010
  Serious: Yes (Other)
  Sender: FDA-Public Use
  Company Number: US200711004949

PATIENT
  Sex: Male

DRUGS (2)
  1. GEMZAR [Suspect]
     Dosage: 1000 MG/M2, OTHER
     Route: 050
     Dates: start: 20070719
  2. ANTIHYPERTENSIVES [Concomitant]

REACTIONS (3)
  - ATRIAL FIBRILLATION [None]
  - BLOOD COUNT ABNORMAL [None]
  - BLOOD CREATININE INCREASED [None]
